FAERS Safety Report 12459281 (Version 1)
Quarter: 2016Q2

REPORT INFORMATION
  Report Type: Spontaneous
  Country: US (occurrence: None)
  Receive Date: 20160610
  Receipt Date: 20160610
  Transmission Date: 20160815
  Serious: Yes (Other)
  Sender: FDA-Public Use
  Company Number: None

PATIENT
  Age: 70 Year
  Sex: Male
  Weight: 74.84 kg

DRUGS (1)
  1. LISINOPRIL-HCTZ [Suspect]
     Active Substance: HYDROCHLOROTHIAZIDE\LISINOPRIL
     Indication: HYPERTENSION
     Dosage: LISINOPRIL/HCTZ 10/12.5  1 TAB DAILY BY MOUTH
     Route: 048
     Dates: start: 20160527, end: 20160605

REACTIONS (4)
  - Lip swelling [None]
  - Intentional product use issue [None]
  - Malaise [None]
  - Blood pressure decreased [None]

NARRATIVE: CASE EVENT DATE: 20160605
